FAERS Safety Report 18428508 (Version 1)
Quarter: 2020Q4

REPORT INFORMATION
  Report Type: Not Available
  Country: DE (occurrence: DE)
  Receive Date: 20201026
  Receipt Date: 20201026
  Transmission Date: 20210114
  Serious: Yes (Other)
  Sender: FDA-Public Use
  Company Number: DE-SYNTHON BV-IN51PV20_55882

PATIENT
  Sex: Male

DRUGS (1)
  1. TAMSULOSIN ESPARMA [Suspect]
     Active Substance: TAMSULOSIN
     Indication: PRODUCT USED FOR UNKNOWN INDICATION
     Dosage: UNK
     Route: 065
     Dates: start: 2009, end: 20200925

REACTIONS (2)
  - Neoplasm malignant [Unknown]
  - Blood urine present [Unknown]
